FAERS Safety Report 12190232 (Version 1)
Quarter: 2016Q1

REPORT INFORMATION
  Report Type: Spontaneous
  Country: IT (occurrence: IT)
  Receive Date: 20160318
  Receipt Date: 20160318
  Transmission Date: 20160526
  Serious: Yes (Other)
  Sender: FDA-Public Use
  Company Number: IT-AUROBINDO-AUR-APL-2016-03490

PATIENT
  Age: 23 Year
  Sex: Male

DRUGS (1)
  1. RISPERIDONE 6MG [Suspect]
     Active Substance: RISPERIDONE
     Indication: PSYCHOTIC DISORDER
     Dosage: 6 MG, DAILY
     Route: 048
     Dates: start: 20160229, end: 20160303

REACTIONS (1)
  - No therapeutic response [Recovered/Resolved]

NARRATIVE: CASE EVENT DATE: 20160229
